FAERS Safety Report 4339480-9 (Version None)
Quarter: 2004Q2

REPORT INFORMATION
  Report Type: 
  Country: None (occurrence: None)
  Receive Date: 20040415
  Receipt Date: 20040112
  Transmission Date: 20050107
  Serious: Yes (Death)
  Sender: FDA-Public Use
  Company Number: GB-ROCHE-355917

PATIENT
  Age: 33 Year
  Sex: Male

DRUGS (1)
  1. ROACCUTANE [Suspect]
     Indication: SKIN DISORDER
     Route: 065

REACTIONS (1)
  - COMPLETED SUICIDE [None]
